FAERS Safety Report 9256335 (Version 1)
Quarter: 2013Q2

REPORT INFORMATION
  Report Type: Spontaneous
  Country: US (occurrence: US)
  Receive Date: 20130425
  Receipt Date: 20130425
  Transmission Date: 20140414
  Serious: No
  Sender: FDA-Public Use
  Company Number: US-AMGEN-USASP2012081194

PATIENT
  Sex: Female

DRUGS (2)
  1. NEULASTA [Suspect]
     Indication: PRODUCT USED FOR UNKNOWN INDICATION
     Dosage: UNK
     Dates: start: 20121215
  2. CHEMOTHERAPEUTICS [Concomitant]
     Dosage: UNK
     Dates: start: 20121213

REACTIONS (3)
  - Nausea [Not Recovered/Not Resolved]
  - Tremor [Unknown]
  - Sleep disorder [Unknown]
